FAERS Safety Report 13450658 (Version 1)
Quarter: 2017Q2

REPORT INFORMATION
  Report Type: Spontaneous
  Country: US (occurrence: US)
  Receive Date: 20170418
  Receipt Date: 20170418
  Transmission Date: 20170830
  Serious: No
  Sender: FDA-Public Use
  Company Number: US-ENDO PHARMACEUTICALS INC-2016SCPR015350

PATIENT

DRUGS (1)
  1. HYDRALAZINE HCL [Suspect]
     Active Substance: HYDRALAZINE HYDROCHLORIDE
     Dosage: 1 DF, OD
     Route: 048
     Dates: start: 201512

REACTIONS (6)
  - Wrong drug administered [Unknown]
  - Tinnitus [Unknown]
  - Abdominal pain upper [Unknown]
  - Headache [Unknown]
  - Arthralgia [Unknown]
  - Drug dispensing error [Unknown]

NARRATIVE: CASE EVENT DATE: 201512
